FAERS Safety Report 25926491 (Version 1)
Quarter: 2025Q4

REPORT INFORMATION
  Report Type: Spontaneous
  Country: GB (occurrence: GB)
  Receive Date: 20251015
  Receipt Date: 20251015
  Transmission Date: 20260118
  Serious: Yes (Other)
  Sender: ORGANON
  Company Number: None

PATIENT
  Age: 60 Year
  Sex: Female
  Weight: 56 kg

DRUGS (3)
  1. MOMETASONE FUROATE [Suspect]
     Active Substance: MOMETASONE FUROATE
     Indication: Nasal obstruction
     Dosage: 2 SPRAYS IN EACH NOSTRIL, TWICE EACH DAY
     Dates: start: 20250908
  2. MOMETASONE FUROATE [Suspect]
     Active Substance: MOMETASONE FUROATE
     Indication: Ear discomfort
  3. OLOPATADINE [Suspect]
     Active Substance: OLOPATADINE
     Dosage: UNK

REACTIONS (5)
  - Muscle fatigue [Recovering/Resolving]
  - Brain fog [Recovering/Resolving]
  - Tinnitus [Not Recovered/Not Resolved]
  - Somnolence [Recovering/Resolving]
  - Sinus headache [Recovering/Resolving]
